FAERS Safety Report 6748451-4 (Version None)
Quarter: 2010Q2

REPORT INFORMATION
  Report Type: 
  Country: None (occurrence: None)
  Receive Date: 20100526
  Receipt Date: 20090819
  Transmission Date: 20101027
  Serious: Yes (Other)
  Sender: FDA-Public Use
  Company Number: 285440

PATIENT
  Age: 60 Year
  Sex: Female
  Weight: 54 kg

DRUGS (6)
  1. ACTIVELLA [Suspect]
     Indication: MENOPAUSE
     Dosage: 1 MG(.5MG)
     Dates: start: 20030904, end: 20050201
  2. PREMARIN [Suspect]
     Indication: MENOPAUSE
     Dosage: 1.25 MG
     Dates: start: 19940101, end: 20010101
  3. PROVERA [Suspect]
     Indication: MENOPAUSE
     Dosage: 10 GM ON DAYS 16 THROUGH 25
     Dates: start: 19980719, end: 20010101
  4. ESTROPIPATE [Suspect]
     Indication: MENOPAUSE
     Dosage: 1.5 MG, (1.25MG)
     Dates: start: 20010502, end: 20030101
  5. MEDROXYPROGESTERONE [Suspect]
     Indication: MENOPAUSE
     Dosage: 10 MG DAYS 16 THROUGH 25
     Dates: start: 20010502, end: 20021101
  6. CYCRIN [Suspect]
     Indication: MENOPAUSE
     Dosage: 10 MG, QD ON DAYS 16 THROUGH 25
     Dates: start: 19980719, end: 20030801

REACTIONS (2)
  - BREAST CANCER [None]
  - SCLERODERMA [None]
